FAERS Safety Report 20696219 (Version 1)
Quarter: 2022Q2

REPORT INFORMATION
  Report Type: Other
  Country: CN (occurrence: CN)
  Receive Date: 20220411
  Receipt Date: 20220411
  Transmission Date: 20220720
  Serious: Yes (Hospitalization)
  Sender: FDA-Public Use
  Company Number: CN-BIOCRYST-2022BCR00204

PATIENT
  Age: 1 Year
  Sex: Female
  Weight: 9.3 kg

DRUGS (5)
  1. RAPIVAB [Suspect]
     Active Substance: PERAMIVIR
     Indication: Pyrexia
     Route: 065
  2. RIBOFLAVIN [Suspect]
     Active Substance: RIBOFLAVIN
     Route: 065
  3. IBUPROFEN [Suspect]
     Active Substance: IBUPROFEN
     Route: 065
  4. CARNITINE [Suspect]
     Active Substance: CARNITINE
     Route: 065
  5. DEXTROSE [Suspect]
     Active Substance: DEXTROSE
     Route: 065

REACTIONS (2)
  - Acute kidney injury [Unknown]
  - Rhabdomyolysis [Unknown]
